FAERS Safety Report 23335672 (Version 1)
Quarter: 2023Q4

REPORT INFORMATION
  Report Type: Spontaneous
  Country: US (occurrence: None)
  Receive Date: 20231225
  Receipt Date: 20231225
  Transmission Date: 20240109
  Serious: Yes (Other)
  Sender: FDA-Public Use
  Company Number: 2023A287476

PATIENT
  Age: 74 Year
  Sex: Male

DRUGS (1)
  1. ACALABRUTINIB [Suspect]
     Active Substance: ACALABRUTINIB
     Indication: Waldenstrom^s macroglobulinaemia
     Route: 048

REACTIONS (4)
  - Toxicity to various agents [Unknown]
  - Lymphoplasmacytoid lymphoma/immunocytoma [Unknown]
  - Superficial inflammatory dermatosis [Unknown]
  - Panniculitis lobular [Unknown]
